FAERS Safety Report 5360893-0 (Version None)
Quarter: 2007Q2

REPORT INFORMATION
  Report Type: 
  Country: None (occurrence: None)
  Receive Date: 20070618
  Receipt Date: 20070606
  Transmission Date: 20071010
  Serious: Yes (Hospitalization, Other)
  Sender: FDA-Public Use
  Company Number: US-PFIZER INC-2007035011

PATIENT
  Sex: Male
  Weight: 69.9 kg

DRUGS (5)
  1. DILANTIN [Suspect]
     Indication: CONVULSION
  2. FOSAMAX [Interacting]
     Indication: OSTEOPOROSIS
     Dates: start: 20070101, end: 20070101
  3. TOPAMAX [Interacting]
     Dates: start: 20070101, end: 20070101
  4. ALL OTHER THERAPEUTIC PRODUCTS [Suspect]
  5. MIACALCIN [Concomitant]

REACTIONS (14)
  - ABDOMINAL PAIN UPPER [None]
  - ABNORMAL BEHAVIOUR [None]
  - ANTICONVULSANT DRUG LEVEL INCREASED [None]
  - ANXIETY [None]
  - CHEST PAIN [None]
  - CONSTIPATION [None]
  - CONVULSION [None]
  - DROOLING [None]
  - DRUG INTERACTION [None]
  - EROSIVE OESOPHAGITIS [None]
  - HEADACHE [None]
  - OESOPHAGITIS [None]
  - OSTEOPOROSIS [None]
  - WEIGHT DECREASED [None]
